FAERS Safety Report 7162776-2 (Version None)
Quarter: 2010Q4

REPORT INFORMATION
  Report Type: 
  Country: None (occurrence: None)
  Receive Date: 20101215
  Receipt Date: 20101207
  Transmission Date: 20110411
  Serious: Yes (Death, Hospitalization, Other)
  Sender: FDA-Public Use
  Company Number: FR-SANOFI-AVENTIS-2010SA071504

PATIENT
  Age: 69 Year
  Sex: Female

DRUGS (21)
  1. CALCIPARINE [Suspect]
     Route: 058
     Dates: start: 20101029, end: 20101101
  2. TAXOTERE [Suspect]
     Indication: BREAST CANCER
  3. TAXOTERE [Suspect]
  4. TAXOTERE [Suspect]
  5. TAXOTERE [Suspect]
  6. TAXOTERE [Suspect]
     Dates: start: 20100914, end: 20100914
  7. TAXOTERE [Suspect]
     Dates: start: 20101015, end: 20101015
  8. AVASTIN [Suspect]
     Indication: BREAST CANCER
  9. AVASTIN [Suspect]
  10. AVASTIN [Suspect]
  11. AVASTIN [Suspect]
  12. AVASTIN [Suspect]
     Dates: start: 20100914, end: 20100914
  13. SKENAN [Suspect]
     Dates: start: 20101030, end: 20101031
  14. NIMBEX [Suspect]
     Dates: start: 20101029, end: 20101029
  15. DIPRIVAN [Suspect]
     Dates: start: 20101029, end: 20101029
  16. ACETAMINOPHEN [Suspect]
     Dates: start: 20101030, end: 20101031
  17. RAPIFEN [Suspect]
     Dates: start: 20101030, end: 20101031
  18. CEFUROXIME [Suspect]
     Dates: start: 20101029, end: 20101029
  19. LOXEN [Concomitant]
  20. LEVOTHYROX [Concomitant]
  21. NOCTRAN [Concomitant]

REACTIONS (3)
  - ARTERIAL THROMBOSIS [None]
  - INTESTINAL ISCHAEMIA [None]
  - MULTI-ORGAN FAILURE [None]
